FAERS Safety Report 4518553-1 (Version None)
Quarter: 2004Q4

REPORT INFORMATION
  Report Type: 
  Country: None (occurrence: None)
  Receive Date: 20041201
  Receipt Date: 20041115
  Transmission Date: 20050328
  Serious: Yes (Hospitalization, Other)
  Sender: FDA-Public Use
  Company Number: 440001E04USA

PATIENT
  Age: 40 Year
  Sex: Male

DRUGS (3)
  1. SEROSTIM [Suspect]
     Indication: HIV INFECTION
     Dosage: SEE IMAGE
     Route: 058
     Dates: start: 20041013, end: 20041111
  2. SEROSTIM [Suspect]
     Indication: HIV INFECTION
     Dosage: SEE IMAGE
     Route: 058
     Dates: start: 20041112, end: 20041113
  3. VENLAFAXINE HCL [Suspect]
     Indication: DEPRESSION
     Dosage: ORAL
     Route: 048
     Dates: start: 20031001

REACTIONS (6)
  - ANXIETY [None]
  - ASTHENIA [None]
  - BLOOD PRESSURE DIASTOLIC INCREASED [None]
  - BLOOD PRESSURE INCREASED [None]
  - MIGRAINE [None]
  - PARAESTHESIA [None]
